FAERS Safety Report 9216481 (Version 1)
Quarter: 2013Q2

REPORT INFORMATION
  Report Type: Spontaneous
  Country: DE (occurrence: DE)
  Receive Date: 20130408
  Receipt Date: 20130408
  Transmission Date: 20140414
  Serious: Yes (Hospitalization, Other)
  Sender: FDA-Public Use
  Company Number: DE-ELI_LILLY_AND_COMPANY-DE201303009784

PATIENT
  Age: 85 Year
  Sex: Male

DRUGS (6)
  1. HUMALOG LISPRO [Suspect]
     Indication: DIABETES MELLITUS
     Dosage: UNK
     Route: 058
     Dates: start: 2000
  2. ISCOVER [Concomitant]
     Dosage: 75 DF, UNK
  3. CANDESARTAN [Concomitant]
     Dosage: 16 MG, UNK
  4. CANDESARTAN [Concomitant]
     Dosage: 12.5 MG, UNK
  5. METOHEXAL [Concomitant]
     Dosage: 95 MG, UNK
  6. SIMVAHEXAL [Concomitant]
     Dosage: 40 MG, UNK

REACTIONS (2)
  - Lung neoplasm malignant [Unknown]
  - Dyspnoea [Unknown]
